FAERS Safety Report 6935338-7 (Version None)
Quarter: 2010Q3

REPORT INFORMATION
  Report Type: 
  Country: None (occurrence: None)
  Receive Date: 20100823
  Receipt Date: 20100816
  Transmission Date: 20110219
  Serious: Yes (Other)
  Sender: FDA-Public Use
  Company Number: BR-BAYER-201018006LA

PATIENT
  Sex: Female

DRUGS (1)
  1. YAZ [Suspect]
     Indication: PRODUCT USED FOR UNKNOWN INDICATION
     Dosage: UNK DATE STOPPED 30 DAYS DUE TO EVENTS AND RETURNED
     Route: 048
     Dates: start: 20090101

REACTIONS (4)
  - ARRHYTHMIA [None]
  - DIPLOPIA [None]
  - DIZZINESS [None]
  - LABYRINTHITIS [None]
